FAERS Safety Report 17157254 (Version 3)
Quarter: 2020Q1

REPORT INFORMATION
  Report Type: Spontaneous
  Country: US (occurrence: US)
  Receive Date: 20191216
  Receipt Date: 20200128
  Transmission Date: 20200409
  Serious: No
  Sender: FDA-Public Use
  Company Number: US-ALEMBIC PHARMACUETICALS LIMITED-2019SCAL000966

PATIENT

DRUGS (1)
  1. DESVENLAFAXINE SUCCINATE. [Suspect]
     Active Substance: DESVENLAFAXINE SUCCINATE
     Indication: PREMENSTRUAL SYNDROME
     Dosage: 100 MILLIGRAM

REACTIONS (4)
  - Dizziness [Unknown]
  - Product residue present [Unknown]
  - Product substitution issue [Unknown]
  - Product solubility abnormal [Unknown]
